FAERS Safety Report 6408409-1 (Version None)
Quarter: 2009Q4

REPORT INFORMATION
  Report Type: 
  Country: None (occurrence: None)
  Receive Date: 20091016
  Receipt Date: 20091006
  Transmission Date: 20100525
  Serious: Yes (Other)
  Sender: FDA-Public Use
  Company Number: DSM-2009-01527

PATIENT
  Age: 79 Year
  Sex: Female
  Weight: 51 kg

DRUGS (1)
  1. SEVIKAR (OLMESARTAN MEDOXOMIL/AMLODIPINE BESILATE) (TABLET) [Suspect]
     Indication: HYPERTENSION
     Dosage: 40/ 5 MG (1 IN 1 D), ORAL
     Route: 048
     Dates: start: 20090813, end: 20090915

REACTIONS (2)
  - DEPRESSION [None]
  - DIZZINESS [None]
